FAERS Safety Report 18706627 (Version 1)
Quarter: 2021Q1

REPORT INFORMATION
  Report Type: Spontaneous
  Country: US (occurrence: US)
  Receive Date: 20210106
  Receipt Date: 20210106
  Transmission Date: 20210419
  Serious: No
  Sender: FDA-Public Use
  Company Number: None

PATIENT
  Age: 53 Year
  Sex: Female
  Weight: 48.6 kg

DRUGS (25)
  1. VALERIAN [Concomitant]
     Active Substance: VALERIAN
  2. GINKO LEAF [Concomitant]
  3. COCONUT OIL [Concomitant]
     Active Substance: COCONUT OIL
  4. MATCHA POWDER [Concomitant]
  5. HEMP HEART [Concomitant]
  6. WEST WHEAT GRASS [Concomitant]
     Active Substance: PASCOPYRUM SMITHII POLLEN
  7. CHIA SEED [Concomitant]
  8. CANNABIS OIL  AND CREAM [Concomitant]
  9. APPLE CIDER VINEGAR [Concomitant]
     Active Substance: APPLE CIDER VINEGAR
  10. HOPS. [Concomitant]
     Active Substance: HOPS
  11. REGANOL [Concomitant]
  12. BLACK COHOSH [Concomitant]
     Active Substance: BLACK COHOSH
  13. HAWTHORNE [Concomitant]
  14. EYE BRIGHT HERB [Concomitant]
  15. KOREAN RED GINSENG [Concomitant]
     Active Substance: DIETARY SUPPLEMENT
  16. PALMAGRANITE POWDER [Concomitant]
  17. ECHINACEA [Concomitant]
     Active Substance: ECHINACEA, UNSPECIFIED
  18. GRAPE SEED EXTRACT [Concomitant]
     Active Substance: DIETARY SUPPLEMENT\GRAPE SEED EXTRACT
  19. PERIWINKLE TINCTURE [Concomitant]
  20. FLAX OIL WITH LIGNAMS [Concomitant]
  21. OREGAREST [Concomitant]
  22. GROUND FLAX SEED [Concomitant]
  23. MORINGA [Concomitant]
  24. PENICILLIN V POTASSIUM. [Suspect]
     Active Substance: PENICILLIN V POTASSIUM
     Indication: ORAL INFECTION
     Dosage: ?          QUANTITY:1 TABLET(S);?
     Route: 048
  25. TURMERIC [Concomitant]
     Active Substance: HERBALS\TURMERIC

REACTIONS (4)
  - Wheezing [None]
  - Asthma [None]
  - Throat tightness [None]
  - Throat irritation [None]

NARRATIVE: CASE EVENT DATE: 20210104
